FAERS Safety Report 17833969 (Version 7)
Quarter: 2020Q4

REPORT INFORMATION
  Report Type: Report from Study
  Country: BE (occurrence: BE)
  Receive Date: 20200528
  Receipt Date: 20201015
  Transmission Date: 20210113
  Serious: Yes (Hospitalization, Other)
  Sender: FDA-Public Use
  Company Number: NVSC2020BE141127

PATIENT
  Age: 5 Year
  Sex: Female
  Weight: 19 kg

DRUGS (7)
  1. TRAMETINIB [Suspect]
     Active Substance: TRAMETINIB
     Dosage: 50 MG, BID
     Route: 048
     Dates: start: 20200520
  2. ELOCOM [Concomitant]
     Active Substance: MOMETASONE FUROATE
     Indication: CUTANEOUS SYMPTOM
     Dosage: UNK
     Route: 065
     Dates: start: 20200515
  3. DABRAFENIB [Suspect]
     Active Substance: DABRAFENIB
     Dosage: 150 MG, BID
     Route: 048
     Dates: start: 20200520
  4. TRAMETINIB [Suspect]
     Active Substance: TRAMETINIB
     Indication: GLIOMA
     Dosage: 50 MG, BID
     Route: 048
     Dates: start: 20200504, end: 20200516
  5. DABRAFENIB [Suspect]
     Active Substance: DABRAFENIB
     Indication: GLIOMA
     Dosage: 150 MG, BID
     Route: 048
     Dates: start: 20200504, end: 20200516
  6. PERDOPHEN [Concomitant]
     Active Substance: IBUPROFEN LYSINE
     Indication: PRODUCT USED FOR UNKNOWN INDICATION
     Dosage: UNK
     Route: 065
  7. MOVICOL [Concomitant]
     Active Substance: POLYETHYLENE GLYCOL 3350\POTASSIUM CHLORIDE\SODIUM BICARBONATE\SODIUM CHLORIDE
     Indication: CONSTIPATION
     Dosage: UNK
     Route: 065

REACTIONS (2)
  - Pyrexia [Recovered/Resolved]
  - Erythema nodosum [Recovered/Resolved]

NARRATIVE: CASE EVENT DATE: 20200514
